FAERS Safety Report 9113419 (Version 1)
Quarter: 2013Q1

REPORT INFORMATION
  Report Type: Spontaneous
  Country: FR (occurrence: FR)
  Receive Date: 20130131
  Receipt Date: 20130131
  Transmission Date: 20140127
  Serious: Yes (Hospitalization)
  Sender: FDA-Public Use
  Company Number: FR-PFIZER INC-2013031188

PATIENT
  Age: 57 Year
  Sex: Female

DRUGS (5)
  1. TRIFLUCAN [Suspect]
     Indication: PROPHYLAXIS
     Dosage: 800 MG, 1X/DAY
     Route: 042
     Dates: start: 20121019, end: 20121025
  2. CRESTOR [Suspect]
     Dosage: 20 MG, 1X/DAY
     Route: 048
     Dates: start: 20121017, end: 20121025
  3. CORDARONE [Suspect]
     Indication: ARRHYTHMIA
     Dosage: 200 MG, 1X/DAY
     Route: 048
     Dates: start: 20121015, end: 20121025
  4. CUBICIN [Concomitant]
     Indication: ENDOCARDITIS
     Dosage: 500 MG, 1X/DAY
     Route: 042
     Dates: start: 20121020, end: 20121024
  5. CARDENSIEL [Concomitant]
     Indication: TACHYCARDIA
     Dosage: 1.25 MG, 1X/DAY
     Route: 048
     Dates: start: 20121024, end: 20121025

REACTIONS (1)
  - Hepatitis fulminant [Recovered/Resolved]
